FAERS Safety Report 7414795-6 (Version None)
Quarter: 2011Q2

REPORT INFORMATION
  Report Type: 
  Country: None (occurrence: None)
  Receive Date: 20110414
  Receipt Date: 20110406
  Transmission Date: 20111010
  Serious: Yes (Other)
  Sender: FDA-Public Use
  Company Number: DE-SANOFI-AVENTIS-2009SA009712

PATIENT
  Age: 73 Year
  Sex: Male
  Weight: 67 kg

DRUGS (18)
  1. BIFITERAL ^PHILIPS^ [Concomitant]
     Dates: start: 20030906
  2. PREDNISOLONE [Concomitant]
     Dates: start: 20080601
  3. OMEPRAZOLE [Concomitant]
     Dates: start: 20080601
  4. ALL OTHER THERAPEUTIC PRODUCTS [Concomitant]
     Dates: start: 20090916, end: 20091110
  5. RAMIPRIL [Concomitant]
     Dates: start: 20091006
  6. OXALIPLATIN [Suspect]
     Route: 042
     Dates: start: 20091110, end: 20091110
  7. FLUOROURACIL [Suspect]
     Route: 042
     Dates: start: 20091110, end: 20091110
  8. LEUCOVORIN CALCIUM [Suspect]
     Route: 042
     Dates: start: 20091110, end: 20091110
  9. CALCILAC KT [Concomitant]
     Dates: start: 20080601
  10. ALL OTHER THERAPEUTIC PRODUCTS [Concomitant]
     Dates: start: 20090218
  11. MCP ^ISIS^ [Concomitant]
     Dates: start: 20091018, end: 20091107
  12. AFLIBERCEPT [Suspect]
     Route: 042
     Dates: start: 20091110, end: 20091110
  13. OXALIPLATIN [Suspect]
     Route: 042
     Dates: start: 20090916, end: 20090916
  14. NOVALGIN [Concomitant]
     Dates: start: 20090906
  15. AMLODIPINE [Concomitant]
     Dates: start: 20090929
  16. DEXAMETHASONE [Concomitant]
     Dates: start: 20090916, end: 20091110
  17. AFLIBERCEPT [Suspect]
     Route: 042
     Dates: start: 20090916, end: 20090916
  18. MOVIPREP [Concomitant]
     Dates: start: 20090918

REACTIONS (1)
  - SINOATRIAL BLOCK [None]
